FAERS Safety Report 24204683 (Version 2)
Quarter: 2024Q4

REPORT INFORMATION
  Report Type: Spontaneous
  Country: JP (occurrence: JP)
  Receive Date: 20240813
  Receipt Date: 20241015
  Transmission Date: 20250115
  Serious: Yes (Other)
  Sender: NOVARTIS
  Company Number: JP-002147023-NVSJ2024JP009629

PATIENT
  Age: 40 Year
  Sex: Male

DRUGS (2)
  1. CANAKINUMAB [Suspect]
     Active Substance: CANAKINUMAB
     Indication: Familial mediterranean fever
     Dosage: UNK
     Route: 065
  2. COLCHICINE [Concomitant]
     Active Substance: COLCHICINE
     Indication: Familial mediterranean fever
     Dosage: 1.5 MG
     Route: 065

REACTIONS (2)
  - Pericarditis [Unknown]
  - Epididymitis [Unknown]
